FAERS Safety Report 6150816-9 (Version None)
Quarter: 2009Q2

REPORT INFORMATION
  Report Type: 
  Country: None (occurrence: None)
  Receive Date: 20090409
  Receipt Date: 20090401
  Transmission Date: 20091009
  Serious: Yes (Hospitalization)
  Sender: FDA-Public Use
  Company Number: US-GENENTECH-280584

PATIENT
  Age: 76 Year
  Sex: Female

DRUGS (5)
  1. HERCEPTIN [Suspect]
     Indication: BREAST CANCER
     Dosage: UNK
     Route: 042
     Dates: start: 20081001, end: 20081201
  2. HERCEPTIN [Suspect]
     Dosage: UNK
     Route: 042
     Dates: start: 20081201
  3. CARBOPLATIN [Concomitant]
     Indication: CHEMOTHERAPY
     Dosage: UNK
  4. TAXOTERE [Concomitant]
     Indication: CHEMOTHERAPY
     Dosage: UNK
  5. CHEMOTHERAPY (UNK INGREDIENTS) [Concomitant]
     Indication: CHEMOTHERAPY
     Dosage: UNK

REACTIONS (3)
  - ATRIAL FIBRILLATION [None]
  - HAEMORRHAGE [None]
  - THROMBOSIS [None]
